FAERS Safety Report 5524930-2 (Version None)
Quarter: 2007Q4

REPORT INFORMATION
  Report Type: 
  Country: None (occurrence: None)
  Receive Date: 20071126
  Receipt Date: 20071116
  Transmission Date: 20080405
  Serious: Yes (Hospitalization)
  Sender: FDA-Public Use
  Company Number: PHBS2007ES18824

PATIENT
  Sex: Male

DRUGS (2)
  1. ZOMETA [Suspect]
     Indication: PROSTATE CANCER
     Dosage: 4 MG, QMO
     Route: 042
     Dates: start: 20030101
  2. PAMIDRONATE DISODIUM [Suspect]
     Indication: PROSTATE CANCER
     Dates: end: 20030101

REACTIONS (5)
  - ABNORMAL BEHAVIOUR [None]
  - AMNESIA [None]
  - CSF PROTEIN INCREASED [None]
  - DEMENTIA [None]
  - MUSCLE CONTRACTIONS INVOLUNTARY [None]
